FAERS Safety Report 6082732-5 (Version None)
Quarter: 2009Q1

REPORT INFORMATION
  Report Type: 
  Country: None (occurrence: None)
  Receive Date: 20090218
  Receipt Date: 20090216
  Transmission Date: 20090719
  Serious: Yes (Hospitalization, Other)
  Sender: FDA-Public Use
  Company Number: US-PFIZER INC-2009150182

PATIENT
  Sex: Female
  Weight: 79 kg

DRUGS (11)
  1. ZYVOX [Suspect]
     Indication: STAPHYLOCOCCAL INFECTION
     Dosage: UNK
     Route: 042
     Dates: start: 20080901
  2. ZYVOX [Suspect]
     Route: 048
     Dates: start: 20080901, end: 20080101
  3. ZYVOX [Suspect]
     Dosage: 600 MG, UNK
     Route: 048
     Dates: start: 20080901, end: 20080101
  4. ZETIA [Concomitant]
     Dosage: UNK
  5. METOPROLOL TARTRATE [Concomitant]
     Dosage: UNK
  6. LISINOPRIL [Concomitant]
     Dosage: UNK
  7. HYDROCHLOROTHIAZIDE [Concomitant]
     Dosage: UNK
  8. OMEPRAZOLE [Concomitant]
     Dosage: UNK
  9. LOVAZA [Concomitant]
     Dosage: UNK
  10. LIPITOR [Concomitant]
     Dosage: UNK
  11. UNIPHYL [Concomitant]
     Dosage: UNK

REACTIONS (8)
  - BLOOD PRESSURE FLUCTUATION [None]
  - CHEST PAIN [None]
  - DEHYDRATION [None]
  - DIARRHOEA [None]
  - DIZZINESS [None]
  - NAUSEA [None]
  - SWELLING [None]
  - VOMITING [None]
